FAERS Safety Report 6894391-X (Version None)
Quarter: 2010Q3

REPORT INFORMATION
  Report Type: 
  Country: None (occurrence: None)
  Receive Date: 20100802
  Receipt Date: 20100722
  Transmission Date: 20110219
  Serious: Yes (Other)
  Sender: FDA-Public Use
  Company Number: US-CELGENEUS-163-21880-10072656

PATIENT
  Sex: Female

DRUGS (5)
  1. REVLIMID [Suspect]
     Indication: MULTIPLE MYELOMA
     Route: 048
     Dates: start: 20070701
  2. REVLIMID [Suspect]
     Route: 048
     Dates: start: 20070801
  3. REVLIMID [Suspect]
     Route: 048
     Dates: start: 20080301
  4. REVLIMID [Suspect]
     Route: 048
     Dates: start: 20081201
  5. REVLIMID [Suspect]
     Route: 048
     Dates: start: 20090501, end: 20100601

REACTIONS (2)
  - BRAIN NEOPLASM [None]
  - LUNG NEOPLASM MALIGNANT [None]
